FAERS Safety Report 22194079 (Version 1)
Quarter: 2023Q2

REPORT INFORMATION
  Report Type: Spontaneous
  Country: US (occurrence: US)
  Receive Date: 20230411
  Receipt Date: 20230411
  Transmission Date: 20230721
  Serious: No
  Sender: FDA-Public Use
  Company Number: US-Accord-300920

PATIENT
  Age: 85 Year
  Sex: Male
  Weight: 72.12 kg

DRUGS (5)
  1. PIOGLITAZONE [Suspect]
     Active Substance: PIOGLITAZONE
     Indication: Type 2 diabetes mellitus
     Dosage: 15 MG BY MOUTH ONCE DAILY
     Route: 048
     Dates: start: 20230131, end: 20230204
  2. METFORMIN [Concomitant]
     Active Substance: METFORMIN HYDROCHLORIDE
  3. PLAVIX [Concomitant]
     Active Substance: CLOPIDOGREL BISULFATE
     Dosage: 75 MG DAILY
  4. LISINOPRIL [Concomitant]
     Active Substance: LISINOPRIL
  5. COLESTIPOL [Concomitant]
     Active Substance: COLESTIPOL

REACTIONS (7)
  - Headache [Unknown]
  - Urticaria [Unknown]
  - Rash papular [Unknown]
  - Rash pruritic [Not Recovered/Not Resolved]
  - Hypersomnia [Unknown]
  - Malaise [Unknown]
  - Fatigue [Unknown]

NARRATIVE: CASE EVENT DATE: 20230131
